FAERS Safety Report 25491030 (Version 1)
Quarter: 2025Q2

REPORT INFORMATION
  Report Type: Spontaneous
  Country: US (occurrence: US)
  Receive Date: 20250629
  Receipt Date: 20250629
  Transmission Date: 20250716
  Serious: Yes (Other)
  Sender: DR REDDYS
  Company Number: None

PATIENT
  Age: 31 Year
  Sex: Male

DRUGS (12)
  1. VALPROIC ACID [Suspect]
     Active Substance: VALPROIC ACID
     Indication: Aggression
  2. VALPROIC ACID [Suspect]
     Active Substance: VALPROIC ACID
     Indication: Euphoric mood
  3. CLONIDINE [Suspect]
     Active Substance: CLONIDINE
     Indication: Anxiety
     Dosage: AT DINNER TIME
  4. RISPERIDONE [Suspect]
     Active Substance: RISPERIDONE
     Indication: Delusion
     Route: 048
  5. RISPERIDONE [Suspect]
     Active Substance: RISPERIDONE
     Dosage: DOSE WAS INCREASED TO 0.5MG IN AM AND 1.0MG AT HS
  6. CLONAZEPAM [Suspect]
     Active Substance: CLONAZEPAM
     Indication: Anxiety
     Dosage: AM
  7. CLONAZEPAM [Suspect]
     Active Substance: CLONAZEPAM
     Dosage: 0.25 MG IN AM AND 0.5MG AT HS
  8. CLONAZEPAM [Suspect]
     Active Substance: CLONAZEPAM
     Dosage: DOSE INCREASED
  9. MODAFINIL [Suspect]
     Active Substance: MODAFINIL
     Indication: Somnolence
     Dosage: AM
  10. SERTRALINE [Suspect]
     Active Substance: SERTRALINE HYDROCHLORIDE
     Indication: Anxiety
     Dosage: DOSE WAS INCREASED EVERY OTHER MONTH TO A DOSE OF 200 MG/DAY
  11. LITHIUM [Concomitant]
     Active Substance: LITHIUM
     Indication: Aggression
  12. LITHIUM [Concomitant]
     Active Substance: LITHIUM
     Indication: Euphoric mood
     Dosage: DECREASED

REACTIONS (4)
  - Affective disorder [Recovering/Resolving]
  - Behaviour disorder [Recovering/Resolving]
  - Condition aggravated [Recovering/Resolving]
  - Drug interaction [Recovering/Resolving]
